FAERS Safety Report 10381416 (Version 1)
Quarter: 2014Q1

REPORT INFORMATION
  Report Type: Spontaneous
  Country: US (occurrence: None)
  Receive Date: 20140306
  Receipt Date: 20140306
  Transmission Date: 20141002
  Serious: Yes (Hospitalization)
  Sender: FDA-Public Use
  Company Number: 163-21880-13030074

PATIENT
  Age: 76 Year
  Sex: Male

DRUGS (9)
  1. REVLIMID (LENALIDOMIDE) (CAPSULES) [Suspect]
     Indication: PLASMA CELL MYELOMA
     Dosage: 25 MG, 21 IN 21 D, PO
     Route: 048
     Dates: start: 20130124
  2. ASPIRIN LOW DOSE (ACETYLSALICYLIC ACID) [Concomitant]
  3. DEXAMETHASONE (DEXAMETHASONE) [Concomitant]
  4. GLYBURIDE (GLIBENCLAMIDE) [Concomitant]
  5. LORAZEPAM (LORAZEPAM) [Concomitant]
  6. LOVASTATIN (LOVASTATIN) [Concomitant]
  7. MECLIZINE HCL (MECLOZINE HYDROCHLORIDE) [Concomitant]
  8. VECTIBIX(PANTIMUMAB) [Concomitant]
  9. VELCADE (BORTEZOMIB) [Concomitant]

REACTIONS (1)
  - Deep vein thrombosis [None]
